FAERS Safety Report 9575766 (Version 1)
Quarter: 2013Q4

REPORT INFORMATION
  Report Type: Spontaneous
  Country: US (occurrence: US)
  Receive Date: 20131001
  Receipt Date: 20131001
  Transmission Date: 20140711
  Serious: No
  Sender: FDA-Public Use
  Company Number: US-AMGEN-USASP2012053421

PATIENT
  Sex: 0

DRUGS (1)
  1. EPOGEN [Suspect]
     Indication: APLASTIC ANAEMIA
     Dosage: 150 IU/KG, UNK

REACTIONS (1)
  - Therapeutic response decreased [Not Recovered/Not Resolved]
